FAERS Safety Report 8050457-2 (Version None)
Quarter: 2012Q1

REPORT INFORMATION
  Report Type: 
  Country: None (occurrence: None)
  Receive Date: 20120111
  Receipt Date: 20111228
  Transmission Date: 20120608
  Serious: Yes (Hospitalization, Disabling, Other)
  Sender: FDA-Public Use
  Company Number: 2011MA018154

PATIENT
  Age: 85 Year
  Sex: Male
  Weight: 75.2971 kg

DRUGS (8)
  1. AMIODARONE HCL [Concomitant]
  2. LEXAPRO [Concomitant]
  3. SIMVASTATIN [Concomitant]
  4. ANTIBIOTICS [Concomitant]
  5. DIGOXIN [Suspect]
     Dosage: 125 MCG;QD;PO
     Route: 048
     Dates: start: 20080313, end: 20080404
  6. ARANESP [Concomitant]
  7. LASIX [Concomitant]
  8. KLOR-CON [Concomitant]

REACTIONS (61)
  - DYSPNOEA [None]
  - ELECTROCARDIOGRAM ABNORMAL [None]
  - ANAEMIA OF CHRONIC DISEASE [None]
  - URETHRAL CANCER [None]
  - HEART RATE INCREASED [None]
  - NAUSEA [None]
  - TOXICITY TO VARIOUS AGENTS [None]
  - CARDIAC FAILURE CONGESTIVE [None]
  - ASTHENIA [None]
  - PYREXIA [None]
  - PROCEDURAL COMPLICATION [None]
  - BLOOD UREA INCREASED [None]
  - CONDITION AGGRAVATED [None]
  - ARTERIOVENOUS FISTULA [None]
  - NERVE INJURY [None]
  - CARDIOACTIVE DRUG LEVEL INCREASED [None]
  - RED BLOOD CELLS URINE POSITIVE [None]
  - HYDRONEPHROSIS [None]
  - LYMPHOMA [None]
  - JOINT EFFUSION [None]
  - ASBESTOSIS [None]
  - SICK SINUS SYNDROME [None]
  - WALKING AID USER [None]
  - HYPOAESTHESIA [None]
  - BLOOD PRESSURE SYSTOLIC DECREASED [None]
  - PAIN [None]
  - HYPOACUSIS [None]
  - ELECTROCARDIOGRAM ST-T SEGMENT ABNORMAL [None]
  - LUNG NEOPLASM [None]
  - ARRHYTHMIA [None]
  - FATIGUE [None]
  - VOMITING [None]
  - DECREASED APPETITE [None]
  - DIZZINESS [None]
  - CELLULITIS [None]
  - CATHETER SITE SWELLING [None]
  - BLOOD ALKALINE PHOSPHATASE INCREASED [None]
  - BLOOD CREATININE INCREASED [None]
  - ATRIAL FIBRILLATION [None]
  - ABDOMINAL PAIN [None]
  - URINARY TRACT INFECTION [None]
  - ATRIOVENTRICULAR BLOCK FIRST DEGREE [None]
  - PNEUMONITIS [None]
  - URINARY TRACT OBSTRUCTION [None]
  - DYSPNOEA EXERTIONAL [None]
  - ANAEMIA [None]
  - WEIGHT DECREASED [None]
  - MUSCULAR WEAKNESS [None]
  - SPINAL DISORDER [None]
  - ATRIAL FLUTTER [None]
  - ESSENTIAL HYPERTENSION [None]
  - DEPRESSION [None]
  - CARDIAC ENZYMES INCREASED [None]
  - WHITE BLOOD CELLS URINE POSITIVE [None]
  - COUGH [None]
  - ARTHRITIS [None]
  - URINARY INCONTINENCE [None]
  - HYPERHIDROSIS [None]
  - POLLAKIURIA [None]
  - RENAL FAILURE ACUTE [None]
  - TINNITUS [None]
